FAERS Safety Report 9878133 (Version 2)
Quarter: 2014Q2

REPORT INFORMATION
  Report Type: Spontaneous
  Country: US (occurrence: None)
  Receive Date: 20140204
  Receipt Date: 20140627
  Transmission Date: 20141212
  Serious: Yes (Hospitalization)
  Sender: FDA-Public Use
  Company Number: 2014-US-000925

PATIENT
  Age: 46 Year
  Sex: Female

DRUGS (10)
  1. XYREM (SODIUM OXYBATE) ORAL SOLUTION, 500MG/ML [Suspect]
     Indication: NARCOLEPSY
     Route: 048
     Dates: start: 200307
  2. XYREM (SODIUM OXYBATE) ORAL SOLUTION, 500MG/ML [Suspect]
     Indication: CATAPLEXY
     Route: 048
     Dates: start: 200307
  3. GLEEVEC (IMATINIB MESILATE) [Concomitant]
  4. CROMOLYN SODIUM (CROMOGLICATE SODIUM) [Concomitant]
  5. ASPIRIN (ACETYLSALICYLIC ACID) [Concomitant]
  6. BENADRYL (DIPHENHYDRAMINE HYDROCHLORIDE) [Concomitant]
  7. PEPCID (FAMOTIDINE) [Concomitant]
  8. ZOLOFT (SERTRALINE HYDROCHLORIDE) [Concomitant]
  9. DOXEPIN (DOXEPIN HYDROCHLORIDE) [Concomitant]
  10. VIMPAT (LACOSAMIDE) [Concomitant]

REACTIONS (9)
  - Pancytopenia [None]
  - Musculoskeletal stiffness [None]
  - Pain in extremity [None]
  - Thinking abnormal [None]
  - Memory impairment [None]
  - Sleep disorder [None]
  - Feeling abnormal [None]
  - Fibromyalgia [None]
  - Abnormal dreams [None]
